FAERS Safety Report 8330065-6 (Version None)
Quarter: 2012Q2

REPORT INFORMATION
  Report Type: 
  Country: None (occurrence: None)
  Receive Date: 20120502
  Receipt Date: 20120426
  Transmission Date: 20120825
  Serious: Yes (Other)
  Sender: FDA-Public Use
  Company Number: US-FRI-1000030094

PATIENT
  Sex: Female
  Weight: 94 kg

DRUGS (12)
  1. KLONOPIN [Concomitant]
     Indication: INSOMNIA
  2. VITAMIN B-12 [Concomitant]
     Indication: THROMBOCYTOPENIA
  3. DALIRESP [Suspect]
     Indication: CHRONIC OBSTRUCTIVE PULMONARY DISEASE
     Route: 048
     Dates: start: 20120301, end: 20120423
  4. PLAVIX [Concomitant]
     Indication: ANTICOAGULANT THERAPY
  5. LANTUS [Concomitant]
     Indication: DIABETES MELLITUS
     Dosage: SLIDING SCALE
  6. NITROGLYCERIN [Concomitant]
  7. ATENOLOL [Concomitant]
  8. GLYCOPYRROLATE [Concomitant]
     Indication: NIGHT SWEATS
  9. ISOSORBIDE DINITRATE [Concomitant]
     Indication: CORONARY ARTERY DISEASE
  10. GABAPENTIN [Concomitant]
     Indication: NEUROPATHY PERIPHERAL
  11. ASPIRIN [Concomitant]
  12. LIDODERM [Concomitant]
     Indication: BACK PAIN

REACTIONS (5)
  - ANGER [None]
  - WEIGHT DECREASED [None]
  - AGGRESSION [None]
  - BLOOD PRESSURE INCREASED [None]
  - ANGINA PECTORIS [None]
